FAERS Safety Report 9553375 (Version 1)
Quarter: 2013Q3

REPORT INFORMATION
  Report Type: Spontaneous
  Country: US (occurrence: None)
  Receive Date: 20130913
  Receipt Date: 20130913
  Transmission Date: 20140515
  Serious: Yes (Hospitalization)
  Sender: FDA-Public Use
  Company Number: 1000045577

PATIENT
  Age: 43 Year
  Sex: Female
  Weight: 29.1 kg

DRUGS (4)
  1. CELEXA (CITALOPRAM HYDROBROMIDE) [Suspect]
     Indication: ANXIETY
     Dates: start: 20130409, end: 20130423
  2. TOVIAZ (FESOTERODINE FUMARATE) [Suspect]
     Indication: HYPERTONIC BLADDER
     Dates: start: 20130415
  3. AMOXICILLIN CLAVULANATE (SPEKTRAMOX) [Suspect]
     Dosage: 875/125(2 IN 1 D)
     Dates: start: 20130409
  4. ATIVAN [Concomitant]

REACTIONS (3)
  - Drug ineffective [None]
  - Nonspecific reaction [None]
  - Cystitis [None]
